FAERS Safety Report 9187580 (Version 1)
Quarter: 2013Q1

REPORT INFORMATION
  Report Type: Report from Study
  Country: BE (occurrence: BE)
  Receive Date: 20130325
  Receipt Date: 20130325
  Transmission Date: 20140127
  Serious: Yes (Other)
  Sender: FDA-Public Use
  Company Number: BE-UCBSA-081091

PATIENT
  Sex: Female

DRUGS (2)
  1. LEVETIRACETAM [Suspect]
     Indication: EPILEPSY
     Dosage: DAILY DOSE : 3000
  2. OXCARBAZEPINE [Concomitant]
     Indication: EPILEPSY

REACTIONS (2)
  - Abortion spontaneous [Unknown]
  - Pregnancy [Recovered/Resolved]
